FAERS Safety Report 4646473-0 (Version None)
Quarter: 2005Q2

REPORT INFORMATION
  Report Type: 
  Country: None (occurrence: None)
  Receive Date: 20050427
  Receipt Date: 20040416
  Transmission Date: 20051028
  Serious: No
  Sender: FDA-Public Use
  Company Number: US-GLAXOSMITHKLINE-A0507432A

PATIENT
  Age: 77 Year
  Sex: Male

DRUGS (2)
  1. FLOVENT [Suspect]
     Route: 055
  2. COMBIVENT [Suspect]
     Dosage: 3PUFF FOUR TIMES PER DAY
     Route: 055
     Dates: start: 19990101

REACTIONS (4)
  - GLOSSODYNIA [None]
  - ORAL CANDIDIASIS [None]
  - ORAL PAIN [None]
  - THERMAL BURN [None]
